FAERS Safety Report 15479062 (Version 1)
Quarter: 2018Q4

REPORT INFORMATION
  Report Type: Spontaneous
  Country: US (occurrence: US)
  Receive Date: 20181009
  Receipt Date: 20181009
  Transmission Date: 20190205
  Serious: Yes (Other)
  Sender: FDA-Public Use
  Company Number: US-INGENUS PHARMACEUTICALS, LLC-INF201809-000993

PATIENT
  Age: 38 Year
  Sex: Male

DRUGS (6)
  1. CARBOPLATIN. [Suspect]
     Active Substance: CARBOPLATIN
     Dosage: 12 CYCLES
     Route: 014
  2. TEMOZOLOMIDE. [Concomitant]
     Active Substance: TEMOZOLOMIDE
     Dosage: 2 CYCLES
  3. CARBOPLATIN. [Suspect]
     Active Substance: CARBOPLATIN
     Route: 014
  4. BEVACIZUMAB. [Concomitant]
     Active Substance: BEVACIZUMAB
     Dates: end: 201412
  5. BEVACIZUMAB. [Concomitant]
     Active Substance: BEVACIZUMAB
     Dates: end: 201603
  6. BEVACIZUMAB. [Concomitant]
     Active Substance: BEVACIZUMAB
     Dosage: 12 CYCLES
     Route: 042

REACTIONS (1)
  - Cranial nerve disorder [Not Recovered/Not Resolved]
